FAERS Safety Report 14768675 (Version 1)
Quarter: 2018Q2

REPORT INFORMATION
  Report Type: Spontaneous
  Country: US (occurrence: US)
  Receive Date: 20180410
  Receipt Date: 20180410
  Transmission Date: 20180711
  Serious: Yes (Life-Threatening, Disabling)
  Sender: FDA-Public Use
  Company Number: None

PATIENT
  Age: 66 Year
  Sex: Male
  Weight: 72.57 kg

DRUGS (2)
  1. AMANTADINE. [Suspect]
     Active Substance: AMANTADINE HYDROCHLORIDE
     Indication: TREMOR
     Dosage: ?          QUANTITY:50 DF DOSAGE FORM;?
     Route: 048
     Dates: start: 20171211, end: 20171212
  2. CARBIDOPA-LEVO [Suspect]
     Active Substance: CARBIDOPA\LEVODOPA
     Indication: TREMOR
     Dosage: ?          QUANTITY:100 MG MILLIGRAM(S);?
     Route: 048

REACTIONS (10)
  - Loss of consciousness [None]
  - Somnolence [None]
  - Dry eye [None]
  - Heart rate irregular [None]
  - Vision blurred [None]
  - Confusional state [None]
  - Hypoaesthesia [None]
  - Rash macular [None]
  - Incontinence [None]
  - Depression [None]

NARRATIVE: CASE EVENT DATE: 20171211
